FAERS Safety Report 22022157 (Version 2)
Quarter: 2023Q1

REPORT INFORMATION
  Report Type: Spontaneous
  Country: GB (occurrence: GB)
  Receive Date: 20230222
  Receipt Date: 20230329
  Transmission Date: 20230417
  Serious: Yes (Hospitalization, Other)
  Sender: FDA-Public Use
  Company Number: GB-BoehringerIngelheim-2023-BI-220519

PATIENT
  Age: 60 Year
  Sex: Male

DRUGS (1)
  1. EMPAGLIFLOZIN [Suspect]
     Active Substance: EMPAGLIFLOZIN
     Indication: Type 2 diabetes mellitus
     Dates: start: 20150417, end: 20221130

REACTIONS (3)
  - Fournier^s gangrene [Unknown]
  - Malaise [Unknown]
  - Mass [Unknown]
